FAERS Safety Report 16301985 (Version 2)
Quarter: 2019Q2

REPORT INFORMATION
  Report Type: Spontaneous
  Country: CH (occurrence: CH)
  Receive Date: 20190512
  Receipt Date: 20190522
  Transmission Date: 20190711
  Serious: Yes (Other)
  Sender: FDA-Public Use
  Company Number: PHHY2019CH103340

PATIENT
  Age: 85 Year
  Sex: Male

DRUGS (88)
  1. ENTRESTO [Interacting]
     Active Substance: SACUBITRIL\VALSARTAN
     Dosage: 50 MG, QD
     Route: 065
     Dates: start: 20180910, end: 20180910
  2. AMIODARONE [Interacting]
     Active Substance: AMIODARONE
     Dosage: 400 MG, QD
     Route: 065
     Dates: start: 20180825, end: 20180827
  3. AMIODARONE [Interacting]
     Active Substance: AMIODARONE
     Dosage: 600 MG, QD
     Route: 065
     Dates: start: 20180828, end: 20180901
  4. METOPROLOL. [Concomitant]
     Active Substance: METOPROLOL
     Dosage: 25 MG, QD
     Route: 065
     Dates: start: 20180907, end: 20180910
  5. FUROSEMIDE. [Concomitant]
     Active Substance: FUROSEMIDE
     Dosage: 40 MG, QD
     Route: 005
     Dates: start: 20180827, end: 20180827
  6. VALERIAN [Concomitant]
     Active Substance: VALERIAN
     Dosage: 500 MG, QD
     Route: 065
     Dates: start: 20180826, end: 20180909
  7. GUAIFENESIN AND CODEINE PHOSPHATE [Concomitant]
     Active Substance: CODEINE PHOSPHATE\GUAIFENESIN
     Dosage: 257 MG, QD
     Route: 065
     Dates: start: 20180831, end: 20180831
  8. GUAIFENESIN AND CODEINE PHOSPHATE [Concomitant]
     Active Substance: CODEINE PHOSPHATE\GUAIFENESIN
     Dosage: 293 MG, QD
     Route: 065
     Dates: start: 20180911, end: 20180911
  9. GUAIFENESIN AND CODEINE PHOSPHATE [Concomitant]
     Active Substance: CODEINE PHOSPHATE\GUAIFENESIN
     Dosage: 73 MG, QD
     Route: 065
     Dates: start: 20180912, end: 20180912
  10. GRANISETRON [Concomitant]
     Active Substance: GRANISETRON
     Dosage: 3 MG, QD
     Route: 065
     Dates: start: 20180909, end: 20180909
  11. ENTRESTO [Interacting]
     Active Substance: SACUBITRIL\VALSARTAN
     Dosage: 100 MG, QD
     Route: 065
     Dates: start: 20180901, end: 20180901
  12. AMIODARONE [Interacting]
     Active Substance: AMIODARONE
     Dosage: 635 MG, QD
     Route: 065
     Dates: start: 20180914, end: 20180914
  13. AMIODARONE [Interacting]
     Active Substance: AMIODARONE
     Dosage: 900 MG, QD
     Route: 065
     Dates: start: 20180916, end: 20180917
  14. HEPARIN [Concomitant]
     Active Substance: HEPARIN SODIUM
     Dosage: 22500 IU, QD
     Route: 065
     Dates: start: 20180829, end: 20180829
  15. HEPARIN [Concomitant]
     Active Substance: HEPARIN SODIUM
     Dosage: 2000 UNK, UNK
     Route: 065
     Dates: start: 20180912, end: 20180917
  16. FUROSEMIDE. [Concomitant]
     Active Substance: FUROSEMIDE
     Dosage: 20 MG, QD
     Route: 065
     Dates: start: 20180826, end: 20180826
  17. SODIUM BICARBONATE. [Concomitant]
     Active Substance: SODIUM BICARBONATE
     Dosage: 1000 MG, QD
     Route: 065
     Dates: start: 20180829, end: 20180909
  18. SODIUM BICARBONATE. [Concomitant]
     Active Substance: SODIUM BICARBONATE
     Dosage: 10208 MG, QD
     Route: 065
     Dates: start: 20180915, end: 20180915
  19. GUAIFENESIN AND CODEINE PHOSPHATE [Concomitant]
     Active Substance: CODEINE PHOSPHATE\GUAIFENESIN
     Indication: PRODUCT USED FOR UNKNOWN INDICATION
     Dosage: 37 MG, QD
     Route: 065
     Dates: start: 20180828, end: 20180829
  20. ENTRESTO [Interacting]
     Active Substance: SACUBITRIL\VALSARTAN
     Dosage: 50 MG, QD
     Route: 065
     Dates: start: 20180902, end: 20180902
  21. ENTRESTO [Interacting]
     Active Substance: SACUBITRIL\VALSARTAN
     Dosage: 50 MG, QD
     Route: 065
     Dates: start: 20180906, end: 20180906
  22. TORASEMIDE [Concomitant]
     Active Substance: TORSEMIDE
     Dosage: 30 MG, QD
     Route: 065
     Dates: start: 20180825, end: 20180828
  23. ACETAMINOPHEN. [Concomitant]
     Active Substance: ACETAMINOPHEN
     Dosage: 1 G, QD
     Route: 065
     Dates: start: 20180824, end: 20180826
  24. MARCUMAR [Concomitant]
     Active Substance: PHENPROCOUMON
     Dosage: 1.5 MG, QD
     Route: 065
     Dates: start: 20180908, end: 20180908
  25. HEPARIN [Concomitant]
     Active Substance: HEPARIN SODIUM
     Dosage: 2000 UNK, UNK
     Route: 065
     Dates: start: 20180831, end: 20180831
  26. FUROSEMIDE. [Concomitant]
     Active Substance: FUROSEMIDE
     Indication: PRODUCT USED FOR UNKNOWN INDICATION
     Dosage: 40 MG, QD
     Route: 065
     Dates: start: 20180822, end: 20180822
  27. PARAFFIN OIL [Concomitant]
     Indication: PRODUCT USED FOR UNKNOWN INDICATION
     Dosage: 15 ML, QD
     Route: 065
     Dates: start: 20180907, end: 20180907
  28. AMIODARONE [Interacting]
     Active Substance: AMIODARONE
     Dosage: 525 MG, QD
     Route: 065
     Dates: start: 20180915, end: 20180915
  29. SITAGLIPTIN [Concomitant]
     Active Substance: SITAGLIPTIN
     Dosage: 25 MG, QD
     Route: 065
     Dates: start: 20180830, end: 20180831
  30. MARCUMAR [Concomitant]
     Active Substance: PHENPROCOUMON
     Dosage: 0.75 MG, QD
     Route: 065
     Dates: start: 20180902, end: 20180905
  31. HEPARIN [Concomitant]
     Active Substance: HEPARIN SODIUM
     Dosage: 27500 IU, QD
     Route: 065
     Dates: start: 20180828, end: 20180828
  32. FUROSEMIDE. [Concomitant]
     Active Substance: FUROSEMIDE
     Dosage: 80 MG, QD
     Route: 005
     Dates: start: 20180914, end: 20180914
  33. VALERIAN [Concomitant]
     Active Substance: VALERIAN
     Dosage: 500 MG, QD
     Route: 065
     Dates: start: 20180911, end: 20180911
  34. SODIUM BICARBONATE. [Concomitant]
     Active Substance: SODIUM BICARBONATE
     Dosage: 500 MG, QD
     Route: 065
     Dates: start: 20180910, end: 20180910
  35. SODIUM BICARBONATE. [Concomitant]
     Active Substance: SODIUM BICARBONATE
     Dosage: 22167 MG, QD
     Route: 065
     Dates: start: 20180914, end: 20180914
  36. NACL [Concomitant]
     Active Substance: SODIUM CHLORIDE
     Dosage: 1000 ML, QD
     Route: 065
     Dates: start: 20180831, end: 20180831
  37. NACL [Concomitant]
     Active Substance: SODIUM CHLORIDE
     Dosage: 500 ML, QD
     Route: 065
     Dates: start: 20180902, end: 20180902
  38. AMIODARONE [Interacting]
     Active Substance: AMIODARONE
     Indication: VENTRICULAR TACHYCARDIA
     Dosage: 200 MG, QD
     Route: 065
     Dates: start: 20180824, end: 20180824
  39. AMIODARONE [Interacting]
     Active Substance: AMIODARONE
     Dosage: 200 MG, QD
     Route: 065
     Dates: start: 20180902, end: 20180911
  40. AMIODARONE [Interacting]
     Active Substance: AMIODARONE
     Dosage: 200 MG, QD
     Route: 065
     Dates: start: 20180918, end: 20180918
  41. METOPROLOL. [Concomitant]
     Active Substance: METOPROLOL
     Indication: PRODUCT USED FOR UNKNOWN INDICATION
     Dosage: 25 MG, QD
     Route: 065
     Dates: start: 20180820, end: 20180820
  42. TORASEMIDE [Concomitant]
     Active Substance: TORSEMIDE
     Indication: PRODUCT USED FOR UNKNOWN INDICATION
     Dosage: 20 MG, QD
     Route: 065
     Dates: start: 20180821, end: 20180824
  43. HEPARIN [Concomitant]
     Active Substance: HEPARIN SODIUM
     Dosage: 2000 UNK, UNK
     Route: 065
     Dates: start: 20180830, end: 20180830
  44. FUROSEMIDE. [Concomitant]
     Active Substance: FUROSEMIDE
     Dosage: 12 MG, QD
     Route: 005
     Dates: start: 20180913, end: 20180913
  45. PANTOPRAZOLE [Concomitant]
     Active Substance: PANTOPRAZOLE
     Indication: PRODUCT USED FOR UNKNOWN INDICATION
     Dosage: 40 MG, QD
     Route: 065
     Dates: start: 20180829, end: 20180918
  46. GUAIFENESIN AND CODEINE PHOSPHATE [Concomitant]
     Active Substance: CODEINE PHOSPHATE\GUAIFENESIN
     Dosage: 73 MG, QD
     Route: 065
     Dates: start: 20180830, end: 20180830
  47. PREDNISONE. [Concomitant]
     Active Substance: PREDNISONE
     Indication: PRODUCT USED FOR UNKNOWN INDICATION
     Dosage: 25 MG, QD
     Route: 065
     Dates: start: 20180903, end: 20180907
  48. SITAGLIPTIN [Concomitant]
     Active Substance: SITAGLIPTIN
     Indication: PRODUCT USED FOR UNKNOWN INDICATION
     Dosage: 50 MG, QD
     Route: 065
     Dates: start: 20180820, end: 20180820
  49. MARCUMAR [Concomitant]
     Active Substance: PHENPROCOUMON
     Indication: PRODUCT USED FOR UNKNOWN INDICATION
     Dosage: 3 MG, QD
     Route: 065
     Dates: start: 20180830, end: 20180831
  50. HEPARIN [Concomitant]
     Active Substance: HEPARIN SODIUM
     Indication: PRODUCT USED FOR UNKNOWN INDICATION
     Dosage: 5000 IU, QD
     Route: 065
     Dates: start: 20180820, end: 20180820
  51. FUROSEMIDE. [Concomitant]
     Active Substance: FUROSEMIDE
     Dosage: 33 MG, QD
     Route: 005
     Dates: start: 20180916, end: 20180916
  52. SODIUM BICARBONATE. [Concomitant]
     Active Substance: SODIUM BICARBONATE
     Dosage: 3354 MG, QD
     Route: 065
     Dates: start: 20180916, end: 20180916
  53. GUAIFENESIN AND CODEINE PHOSPHATE [Concomitant]
     Active Substance: CODEINE PHOSPHATE\GUAIFENESIN
     Dosage: 183 MG, QD
     Route: 065
     Dates: start: 20180908, end: 20180909
  54. GRANISETRON [Concomitant]
     Active Substance: GRANISETRON
     Indication: PRODUCT USED FOR UNKNOWN INDICATION
     Dosage: 2 MG, QD
     Route: 065
     Dates: start: 20180908, end: 20180908
  55. ENTRESTO [Interacting]
     Active Substance: SACUBITRIL\VALSARTAN
     Dosage: 200 MG, QD
     Route: 065
     Dates: start: 20180821, end: 20180830
  56. ENTRESTO [Interacting]
     Active Substance: SACUBITRIL\VALSARTAN
     Dosage: 150 MG, QD
     Route: 065
     Dates: start: 20180831, end: 20180831
  57. AMIODARONE [Interacting]
     Active Substance: AMIODARONE
     Dosage: 575 MG, QD
     Route: 065
     Dates: start: 20180912, end: 20180912
  58. AMIODARONE [Interacting]
     Active Substance: AMIODARONE
     Dosage: 900 MG, QD
     Route: 065
     Dates: start: 20180913, end: 20180913
  59. ACETYLSALICYLIC ACID [Concomitant]
     Active Substance: ASPIRIN
     Indication: PRODUCT USED FOR UNKNOWN INDICATION
     Dosage: 100 MG, QD
     Route: 065
     Dates: start: 20180821, end: 20180904
  60. METOPROLOL. [Concomitant]
     Active Substance: METOPROLOL
     Dosage: 50 MG, QD
     Route: 065
     Dates: start: 20180821, end: 20180831
  61. SPIRONOLACTONE. [Concomitant]
     Active Substance: SPIRONOLACTONE
     Indication: PRODUCT USED FOR UNKNOWN INDICATION
     Dosage: 12.5 MG, UNK
     Route: 065
     Dates: start: 20180822, end: 20180829
  62. ACETAMINOPHEN. [Concomitant]
     Active Substance: ACETAMINOPHEN
     Dosage: 1 G, QD
     Route: 065
     Dates: start: 20180908, end: 20180908
  63. MARCUMAR [Concomitant]
     Active Substance: PHENPROCOUMON
     Dosage: 0.75 MG, UNK
     Route: 065
     Dates: start: 20180909, end: 20180909
  64. HEPARIN [Concomitant]
     Active Substance: HEPARIN SODIUM
     Dosage: 2000 UNK, UNK
     Route: 065
     Dates: start: 20180918, end: 20180918
  65. SODIUM BICARBONATE. [Concomitant]
     Active Substance: SODIUM BICARBONATE
     Dosage: 25200 MG, QD
     Route: 065
     Dates: start: 20180912, end: 20180912
  66. GUAIFENESIN AND CODEINE PHOSPHATE [Concomitant]
     Active Substance: CODEINE PHOSPHATE\GUAIFENESIN
     Dosage: 183 MG, QD
     Route: 065
     Dates: start: 20180901, end: 20180902
  67. NACL [Concomitant]
     Active Substance: SODIUM CHLORIDE
     Indication: PRODUCT USED FOR UNKNOWN INDICATION
     Dosage: 500 ML, QD
     Route: 065
     Dates: start: 20180830, end: 20180830
  68. SENNOSIDE [Concomitant]
     Active Substance: SENNOSIDES
     Indication: PRODUCT USED FOR UNKNOWN INDICATION
     Dosage: 15 ML, QD
     Route: 065
     Dates: start: 20180907, end: 20180907
  69. GRANISETRON [Concomitant]
     Active Substance: GRANISETRON
     Dosage: 2 MG, QD
     Route: 065
     Dates: start: 20180911, end: 20180911
  70. ENTRESTO [Suspect]
     Active Substance: SACUBITRIL\VALSARTAN
     Indication: CARDIAC FAILURE
     Dosage: 100 MG, QD
     Route: 065
     Dates: start: 20180820, end: 20180820
  71. ENTRESTO [Interacting]
     Active Substance: SACUBITRIL\VALSARTAN
     Dosage: 100 MG, QD
     Route: 065
     Dates: start: 20180907, end: 20180909
  72. ROSUVASTATIN. [Interacting]
     Active Substance: ROSUVASTATIN
     Indication: PRODUCT USED FOR UNKNOWN INDICATION
     Dosage: 10 MG, QD
     Route: 065
     Dates: start: 20180821, end: 20180909
  73. SITAGLIPTIN [Concomitant]
     Active Substance: SITAGLIPTIN
     Dosage: 100 MG, QD
     Route: 065
     Dates: start: 20180821, end: 20180829
  74. ACETAMINOPHEN. [Concomitant]
     Active Substance: ACETAMINOPHEN
     Indication: PRODUCT USED FOR UNKNOWN INDICATION
     Dosage: 2 G, QD
     Route: 065
     Dates: start: 20180823, end: 20180823
  75. MARCUMAR [Concomitant]
     Active Substance: PHENPROCOUMON
     Dosage: 4.5 MG, QD
     Route: 065
     Dates: start: 20180901, end: 20180901
  76. MARCUMAR [Concomitant]
     Active Substance: PHENPROCOUMON
     Dosage: 1.5 MG, QD
     Route: 065
     Dates: start: 20180906, end: 20180906
  77. MARCUMAR [Concomitant]
     Active Substance: PHENPROCOUMON
     Dosage: 0.75 MG, UNK
     Route: 065
     Dates: start: 20180907, end: 20180907
  78. HEPARIN [Concomitant]
     Active Substance: HEPARIN SODIUM
     Dosage: 10000 IU, QD
     Route: 065
     Dates: start: 20180821, end: 20180827
  79. FUROSEMIDE. [Concomitant]
     Active Substance: FUROSEMIDE
     Dosage: 20 MG, QD
     Route: 065
     Dates: start: 20180824, end: 20180824
  80. FUROSEMIDE. [Concomitant]
     Active Substance: FUROSEMIDE
     Dosage: 40 MG, QD
     Route: 005
     Dates: start: 20180909, end: 20180909
  81. FUROSEMIDE. [Concomitant]
     Active Substance: FUROSEMIDE
     Dosage: 56 MG, QD
     Route: 005
     Dates: start: 20180915, end: 20180915
  82. SODIUM BICARBONATE. [Concomitant]
     Active Substance: SODIUM BICARBONATE
     Indication: PRODUCT USED FOR UNKNOWN INDICATION
     Dosage: 500 MG, QD
     Route: 065
     Dates: start: 20180828, end: 20180828
  83. SODIUM BICARBONATE. [Concomitant]
     Active Substance: SODIUM BICARBONATE
     Dosage: 10584 MG, QD
     Route: 065
     Dates: start: 20180913, end: 20180913
  84. GUAIFENESIN AND CODEINE PHOSPHATE [Concomitant]
     Active Substance: CODEINE PHOSPHATE\GUAIFENESIN
     Dosage: 110 MG, QD
     Route: 065
     Dates: start: 20180903, end: 20180907
  85. GUAIFENESIN AND CODEINE PHOSPHATE [Concomitant]
     Active Substance: CODEINE PHOSPHATE\GUAIFENESIN
     Dosage: 110 MG, QD
     Route: 065
     Dates: start: 20180910, end: 20180910
  86. GRANISETRON [Concomitant]
     Active Substance: GRANISETRON
     Dosage: 1 MG, QD
     Route: 065
     Dates: start: 20180910, end: 20180910
  87. GRANISETRON [Concomitant]
     Active Substance: GRANISETRON
     Dosage: 1 MG, QD
     Route: 065
     Dates: start: 20180912, end: 20180912
  88. GRANISETRON [Concomitant]
     Active Substance: GRANISETRON
     Dosage: 1 MG, QD
     Route: 065
     Dates: start: 20180914, end: 20180914

REACTIONS (12)
  - Blood creatine phosphokinase increased [Recovered/Resolved]
  - Drug interaction [Recovered/Resolved]
  - Myoglobinuria [Recovered/Resolved]
  - Fatigue [Unknown]
  - Oliguria [Recovered/Resolved]
  - Nausea [Unknown]
  - Hepatitis [Unknown]
  - Myalgia [Recovered/Resolved]
  - Blood lactic acid increased [Recovered/Resolved]
  - Rhabdomyolysis [Recovered/Resolved]
  - Muscular weakness [Recovered/Resolved]
  - Jaundice [Unknown]

NARRATIVE: CASE EVENT DATE: 20180909
